FAERS Safety Report 6558445-X (Version None)
Quarter: 2010Q1

REPORT INFORMATION
  Report Type: 
  Country: None (occurrence: None)
  Receive Date: 20100129
  Receipt Date: 20100120
  Transmission Date: 20100710
  Serious: Yes (Other)
  Sender: FDA-Public Use
  Company Number: US-JNJFOC-20100109500

PATIENT
  Sex: Female
  Weight: 77.11 kg

DRUGS (7)
  1. DURAGESIC-100 [Suspect]
     Indication: MUSCULOSKELETAL PAIN
     Route: 062
  2. DURAGESIC-100 [Suspect]
     Route: 062
  3. FENTANYL [Suspect]
     Indication: MUSCULOSKELETAL PAIN
     Route: 062
  4. DURAGESIC-100 [Suspect]
     Route: 062
  5. ZOLOFT [Concomitant]
     Indication: DEPRESSION
     Route: 048
  6. SYNTHROID [Concomitant]
     Indication: THYROID DISORDER
     Route: 048
  7. ESTROPIPATE [Concomitant]
     Indication: HORMONE LEVEL ABNORMAL
     Route: 048

REACTIONS (6)
  - ANXIETY [None]
  - APPLICATION SITE ERYTHEMA [None]
  - DEPRESSION [None]
  - INADEQUATE ANALGESIA [None]
  - MENISCUS LESION [None]
  - MUSCULOSKELETAL PAIN [None]
